FAERS Safety Report 5144430-1 (Version None)
Quarter: 2006Q4

REPORT INFORMATION
  Report Type: 
  Country: None (occurrence: None)
  Receive Date: 20061031
  Receipt Date: 20061018
  Transmission Date: 20070319
  Serious: Yes (Other)
  Sender: FDA-Public Use
  Company Number: 2006130233

PATIENT
  Sex: Male

DRUGS (3)
  1. GABAPENTIN [Suspect]
     Indication: EPILEPSY
     Dosage: 800 MG, ORAL
     Route: 048
  2. CARBAMAZEPINE [Concomitant]
  3. PHENYTOIN [Concomitant]

REACTIONS (1)
  - PETIT MAL EPILEPSY [None]
